FAERS Safety Report 6409438-4 (Version None)
Quarter: 2009Q4

REPORT INFORMATION
  Report Type: 
  Country: None (occurrence: None)
  Receive Date: 20091019
  Receipt Date: 20091019
  Transmission Date: 20100525
  Serious: Yes (Other)
  Sender: FDA-Public Use
  Company Number: None

PATIENT
  Age: 49 Year
  Sex: Female
  Weight: 58.9676 kg

DRUGS (1)
  1. CIPROFLOXACIN HCL [Suspect]
     Indication: SINUSITIS
     Dosage: 1 2 TIMES A DAY
     Dates: start: 20091007, end: 20091013

REACTIONS (7)
  - ARTHRALGIA [None]
  - BLEPHAROSPASM [None]
  - DIZZINESS [None]
  - DYSSTASIA [None]
  - FEELING HOT [None]
  - GAIT DISTURBANCE [None]
  - PAIN IN EXTREMITY [None]
